FAERS Safety Report 16771083 (Version 3)
Quarter: 2019Q4

REPORT INFORMATION
  Report Type: Spontaneous
  Country: US (occurrence: US)
  Receive Date: 20190904
  Receipt Date: 20191011
  Transmission Date: 20200122
  Serious: Yes (Hospitalization, Other)
  Sender: FDA-Public Use
  Company Number: US-TORRENT-00009150

PATIENT
  Age: 67 Year
  Sex: Female
  Weight: 45 kg

DRUGS (2)
  1. CITALOPRAM [Suspect]
     Active Substance: CITALOPRAM HYDROBROMIDE
     Indication: DEPRESSION
     Dosage: MANY YEARS (OVER 2 MONTH PERIOD), STRENGTH 40 MG
     Dates: start: 2019, end: 20190604
  2. PAXIL [Suspect]
     Active Substance: PAROXETINE HYDROCHLORIDE
     Indication: DEPRESSION
     Dosage: SWITCHED TO PAXIL ON THE SAME DAY
     Dates: start: 20190707, end: 20190721

REACTIONS (11)
  - Withdrawal syndrome [Not Recovered/Not Resolved]
  - Panic attack [Unknown]
  - Impaired gastric emptying [Unknown]
  - Ill-defined disorder [Not Recovered/Not Resolved]
  - Screaming [Not Recovered/Not Resolved]
  - Mood altered [Not Recovered/Not Resolved]
  - Cardiac disorder [Unknown]
  - Anger [Not Recovered/Not Resolved]
  - Abnormal behaviour [Not Recovered/Not Resolved]
  - Weight decreased [Unknown]
  - Anxiety [Unknown]

NARRATIVE: CASE EVENT DATE: 2019
